FAERS Safety Report 7624692-9 (Version None)
Quarter: 2011Q3

REPORT INFORMATION
  Report Type: 
  Country: None (occurrence: None)
  Receive Date: 20110720
  Receipt Date: 20110707
  Transmission Date: 20111222
  Serious: Yes (Disabling)
  Sender: FDA-Public Use
  Company Number: NL-AMGEN-NLDCT2011023931

PATIENT
  Age: 59 Year
  Sex: Female

DRUGS (5)
  1. DENOSUMAB [Suspect]
     Indication: OSTEOPOROSIS POSTMENOPAUSAL
     Dosage: 60 MG, UNK
     Route: 058
     Dates: start: 20101025, end: 20101025
  2. LEVOTHYROXINE SODIUM [Concomitant]
     Dosage: 25 A?G, UNK
     Route: 048
     Dates: start: 20070101
  3. HYDROCHLOROTHIAZID [Concomitant]
     Dosage: 12.5 MG, UNK
     Route: 048
     Dates: start: 20100101
  4. VITAMIN D [Concomitant]
     Dosage: 400 IU, UNK
     Route: 048
     Dates: start: 20020101
  5. CALCIUM CARBONATE [Concomitant]
     Dosage: 500 MG, UNK
     Route: 048
     Dates: start: 20020101

REACTIONS (1)
  - VASCULITIS [None]
